FAERS Safety Report 7987677-9 (Version None)
Quarter: 2011Q4

REPORT INFORMATION
  Report Type: 
  Country: None (occurrence: None)
  Receive Date: 20111216
  Receipt Date: 20101102
  Transmission Date: 20120403
  Serious: No
  Sender: FDA-Public Use
  Company Number: US-BRISTOL-MYERS SQUIBB COMPANY-15347487

PATIENT
  Age: 67 Year
  Sex: Male

DRUGS (6)
  1. HYPERTENSION MEDICATION [Concomitant]
  2. XANAX [Concomitant]
  3. BUSPIRONE HCL [Concomitant]
  4. INSULIN [Concomitant]
     Dosage: INSULIN PUMP
  5. ABILIFY [Suspect]
     Indication: BIPOLAR DISORDER
     Dosage: FOR 3 DAYS
     Route: 048
     Dates: start: 20100901
  6. LOVASTATIN [Concomitant]

REACTIONS (1)
  - BLOOD GLUCOSE INCREASED [None]
